FAERS Safety Report 5294244-7 (Version None)
Quarter: 2007Q2

REPORT INFORMATION
  Report Type: 
  Country: None (occurrence: None)
  Receive Date: 20070409
  Receipt Date: 20070409
  Transmission Date: 20071010
  Serious: No
  Sender: FDA-Public Use
  Company Number: None

PATIENT
  Age: 71 Year
  Sex: Female
  Weight: 123.3784 kg

DRUGS (1)
  1. IMIPRAMINE [Suspect]

REACTIONS (2)
  - PRURITUS [None]
  - REACTION TO DRUG EXCIPIENTS [None]
